FAERS Safety Report 9363915 (Version 1)
Quarter: 2013Q2

REPORT INFORMATION
  Report Type: Spontaneous
  Country: FR (occurrence: None)
  Receive Date: 20130618
  Receipt Date: 20130618
  Transmission Date: 20140414
  Serious: Yes (Hospitalization)
  Sender: FDA-Public Use
  Company Number: SYM-2013-04849

PATIENT
  Age: 13 Year
  Sex: Female

DRUGS (16)
  1. FLAGYL [Suspect]
     Indication: PRODUCT USED FOR UNKNOWN INDICATION
     Route: 048
     Dates: start: 20130322, end: 20130401
  2. TAZOCILLINE [Suspect]
     Indication: PRODUCT USED FOR UNKNOWN INDICATION
     Dates: start: 20130321, end: 20130401
  3. PERFALGAN [Suspect]
     Indication: PRODUCT USED FOR UNKNOWN INDICATION
     Dosage: (NOT OTHERWISE SPECIFIED)
     Route: 042
     Dates: start: 20130321, end: 20130401
  4. PHOSPHONEUROS (PHOSPHONEUROS) (MAGNESIUM GLYCEROPHOSPHATE, SODIUM PHOSPHATE DIBASIC, PHOSPHORIC ACID, CALCIUM PHOSPHATE DIBASIC) [Concomitant]
  5. DIAMOX (ACETAZOLAMIDE) (ACETAZOLAMIDE) [Concomitant]
  6. FORLAX (MACROGOL) (MACROGOL) [Concomitant]
  7. KEPPRA (LEVETIRACETAM) (LEVETIRACETAM) [Concomitant]
  8. TRILEPTAL (OXCARBAZEPINE) (OXCARBAZEPINE) [Concomitant]
  9. CALCIDOSE (CALCIUM CARBONATE) (CALCIUM CARBONATE) [Concomitant]
  10. DIFFU K (POTASSIUM CHLORIDE) (POTASSIUM CHLORIDE) [Concomitant]
  11. INEXIUM (ESOMEPRAZOLE) (ESOMEPRAZOLE) [Concomitant]
  12. BACTRIM FORTE (BACTRIM) (SULFAMETHOXAZOLE, TRIMETHOPRIM) [Concomitant]
  13. CORTANCYL (PREDNISONE) (PREDNISONE) [Concomitant]
  14. LOVENOX (ENOXAPARIN SODIUM) (ENOXAPARIN SODIUM) [Concomitant]
  15. AMIKLIN (AMIKACAIN) (AMIKACIN) [Concomitant]
  16. TIORFAN (ACETORPHAN) (ACETORPHAN) [Concomitant]

REACTIONS (1)
  - Acute generalised exanthematous pustulosis [None]
